FAERS Safety Report 17110587 (Version 2)
Quarter: 2025Q4

REPORT INFORMATION
  Report Type: Spontaneous
  Country: US (occurrence: US)
  Receive Date: 20191204
  Receipt Date: 20251013
  Transmission Date: 20260118
  Serious: No
  Sender: PFIZER
  Company Number: US-PFIZER INC-2019520748

PATIENT
  Age: 64 Year
  Sex: Female
  Weight: 124.74 kg

DRUGS (1)
  1. PREMPRO [Suspect]
     Active Substance: ESTROGENS, CONJUGATED\MEDROXYPROGESTERONE ACETATE
     Indication: Intermenstrual bleeding
     Dosage: UNK

REACTIONS (8)
  - Nasopharyngitis [Unknown]
  - Hot flush [Unknown]
  - Bronchitis [Recovered/Resolved]
  - Insomnia [Unknown]
  - Off label use [Unknown]
  - Drug effective for unapproved indication [Unknown]
  - Intentional dose omission [Unknown]
  - Product prescribing error [Unknown]
